FAERS Safety Report 8664026 (Version 2)
Quarter: 2012Q4

REPORT INFORMATION
  Report Type: Report from Study
  Country: NL (occurrence: NL)
  Receive Date: 20120713
  Receipt Date: 20121119
  Transmission Date: 20130627
  Serious: Yes (Other)
  Sender: FDA-Public Use
  Company Number: NL-ABBOTT-12P-114-0954408-00

PATIENT
  Sex: Male
  Weight: 103 kg

DRUGS (5)
  1. LUCRIN DEPOT [Suspect]
     Indication: PROSTATE CANCER
     Route: 058
     Dates: start: 20110519, end: 201210
  2. ACETYLSALICYLIC ACID [Concomitant]
     Indication: ANTICOAGULANT THERAPY
     Route: 048
     Dates: start: 2008
  3. HYDROCHLOROTHIAZIDE [Concomitant]
     Indication: FLUID RETENTION
     Route: 048
     Dates: start: 2009
  4. METOPROLOL [Concomitant]
     Indication: HYPERTENSION
     Route: 048
     Dates: start: 2008
  5. MIDAZOLAM [Concomitant]
     Indication: INSOMNIA
     Route: 048

REACTIONS (10)
  - Arteriosclerosis [Not Recovered/Not Resolved]
  - Cataract [Unknown]
  - Visual acuity reduced [Not Recovered/Not Resolved]
  - Osteoporosis [Not Recovered/Not Resolved]
  - Localised infection [Not Recovered/Not Resolved]
  - Oedema peripheral [Not Recovered/Not Resolved]
  - Alopecia [Not Recovered/Not Resolved]
  - Weight increased [Not Recovered/Not Resolved]
  - General physical health deterioration [Not Recovered/Not Resolved]
  - Retinal disorder [Unknown]
